FAERS Safety Report 21502908 (Version 1)
Quarter: 2022Q4

REPORT INFORMATION
  Report Type: Spontaneous
  Country: CA (occurrence: None)
  Receive Date: 20221024
  Receipt Date: 20221024
  Transmission Date: 20230112
  Serious: Yes (Disabling)
  Sender: FDA-Public Use
  Company Number: None

PATIENT
  Age: 17 Year
  Sex: Male
  Weight: 74.25 kg

DRUGS (5)
  1. LITHIUM CARBONATE [Suspect]
     Active Substance: LITHIUM CARBONATE
     Indication: Bipolar disorder
  2. LITHIUM CARBONATE [Concomitant]
     Active Substance: LITHIUM CARBONATE
  3. SEROQUEL [Concomitant]
     Active Substance: QUETIAPINE FUMARATE
  4. OMEGA-3 ACIDS [Concomitant]
     Active Substance: OMEGA-3 FATTY ACIDS
  5. SEROQUEL [Suspect]
     Active Substance: QUETIAPINE FUMARATE

REACTIONS (9)
  - Hypophagia [None]
  - Insomnia [None]
  - Gastrointestinal disorder [None]
  - Renal impairment [None]
  - Blood creatinine increased [None]
  - Constipation [None]
  - Dysuria [None]
  - Drug interaction [None]
  - Laboratory test interference [None]

NARRATIVE: CASE EVENT DATE: 20180824
